FAERS Safety Report 9913066 (Version 1)
Quarter: 2014Q1

REPORT INFORMATION
  Report Type: Spontaneous
  Country: US (occurrence: None)
  Receive Date: 20140218
  Receipt Date: 20140218
  Transmission Date: 20141002
  Serious: Yes (Life-Threatening)
  Sender: FDA-Public Use
  Company Number: None

PATIENT
  Age: 6 Year
  Sex: Female
  Weight: 22.68 kg

DRUGS (1)
  1. CHILDRENS MUCINEX MULTI-SYMPTOM COLD [Suspect]
     Indication: NASOPHARYNGITIS
     Route: 048
     Dates: start: 20140212

REACTIONS (1)
  - Anaphylactic shock [None]
